FAERS Safety Report 6185896-8 (Version None)
Quarter: 2009Q2

REPORT INFORMATION
  Report Type: 
  Country: None (occurrence: None)
  Receive Date: 20090511
  Receipt Date: 20090506
  Transmission Date: 20091009
  Serious: Yes (Death, Hospitalization)
  Sender: FDA-Public Use
  Company Number: D0061136A

PATIENT
  Sex: Female
  Weight: 62 kg

DRUGS (3)
  1. TYVERB [Suspect]
     Route: 048
     Dates: start: 20090201, end: 20090401
  2. XELODA [Suspect]
     Route: 048
  3. IMODIUM [Concomitant]
     Route: 048
     Dates: start: 20090201, end: 20090401

REACTIONS (3)
  - GENERAL PHYSICAL HEALTH DETERIORATION [None]
  - PALMAR-PLANTAR ERYTHRODYSAESTHESIA SYNDROME [None]
  - PNEUMONIA [None]
